FAERS Safety Report 4359229-3 (Version None)
Quarter: 2004Q2

REPORT INFORMATION
  Report Type: 
  Country: None (occurrence: None)
  Receive Date: 20040512
  Receipt Date: 20040504
  Transmission Date: 20050107
  Serious: Yes (Hospitalization, Other)
  Sender: FDA-Public Use
  Company Number: 200412905BWH

PATIENT
  Age: 52 Year
  Sex: Male
  Weight: 94.8018 kg

DRUGS (2)
  1. LEVITRA [Suspect]
     Indication: ERECTILE DYSFUNCTION
     Dosage: ORAL
     Route: 048
     Dates: start: 20040201
  2. GLYBURIDE [Concomitant]

REACTIONS (6)
  - ATRIAL FLUTTER [None]
  - DYSPNOEA [None]
  - ELECTROCARDIOGRAM ST SEGMENT ABNORMAL [None]
  - OEDEMA PERIPHERAL [None]
  - PALLOR [None]
  - RALES [None]
